FAERS Safety Report 9271542 (Version 1)
Quarter: 2013Q2

REPORT INFORMATION
  Report Type: Spontaneous
  Country: BR (occurrence: BR)
  Receive Date: 20130506
  Receipt Date: 20130506
  Transmission Date: 20140414
  Serious: Yes (Hospitalization)
  Sender: FDA-Public Use
  Company Number: BR-PFIZER INC-2013136073

PATIENT
  Age: 59 Year
  Sex: Female
  Weight: 68 kg

DRUGS (2)
  1. LIPITOR [Suspect]
     Dosage: 40 MG, 1X/DAY
     Route: 048
     Dates: start: 20071001
  2. ARADOIS [Concomitant]
     Indication: HYPERTENSION
     Dosage: UNK, 1X/DAY
     Dates: start: 2003

REACTIONS (1)
  - Cerebrovascular accident [Unknown]
